FAERS Safety Report 21180068 (Version 1)
Quarter: 2022Q3

REPORT INFORMATION
  Report Type: Spontaneous
  Country: US (occurrence: None)
  Receive Date: 20220805
  Receipt Date: 20220805
  Transmission Date: 20221027
  Serious: No
  Sender: FDA-Public Use
  Company Number: None

PATIENT
  Age: 65 Year
  Sex: Female
  Weight: 103.42 kg

DRUGS (2)
  1. TALTZ [Suspect]
     Active Substance: IXEKIZUMAB
     Indication: Psoriatic arthropathy
     Dosage: OTHER FREQUENCY : WK12THENEVERY4WKS;?
     Route: 058
     Dates: start: 202203
  2. TALTZ [Suspect]
     Active Substance: IXEKIZUMAB
     Indication: Polyarthritis

REACTIONS (1)
  - Pancreatitis [None]
